FAERS Safety Report 7467085-X (Version None)
Quarter: 2011Q2

REPORT INFORMATION
  Report Type: 
  Country: None (occurrence: None)
  Receive Date: 20110509
  Receipt Date: 20101012
  Transmission Date: 20111010
  Serious: No
  Sender: FDA-Public Use
  Company Number: US-ALEXION-A201001289

PATIENT
  Sex: Male

DRUGS (3)
  1. PRILOSEC [Concomitant]
     Indication: ABDOMINAL PAIN UPPER
  2. SOLIRIS [Suspect]
     Indication: PAROXYSMAL NOCTURNAL HAEMOGLOBINURIA
     Dosage: 900 MG, Q2W
     Route: 042
  3. PRILOSEC [Concomitant]
     Indication: DYSPEPSIA
     Dosage: UNK

REACTIONS (2)
  - DYSPEPSIA [None]
  - ABDOMINAL PAIN UPPER [None]
